FAERS Safety Report 24743383 (Version 2)
Quarter: 2025Q1

REPORT INFORMATION
  Report Type: Spontaneous
  Country: PT (occurrence: PT)
  Receive Date: 20241217
  Receipt Date: 20250102
  Transmission Date: 20250408
  Serious: Yes (Hospitalization)
  Sender: PFIZER
  Company Number: PT-PFIZER INC-PV202400162979

PATIENT
  Age: 81 Year
  Sex: Male

DRUGS (15)
  1. SPIRONOLACTONE [Interacting]
     Active Substance: SPIRONOLACTONE
     Indication: Heart failure with preserved ejection fraction
     Dosage: 25 MG, OD (1X/DAY)
  2. SPIRONOLACTONE [Interacting]
     Active Substance: SPIRONOLACTONE
     Indication: Atrial fibrillation
  3. COLCHICINE [Interacting]
     Active Substance: COLCHICINE
     Indication: Heart failure with preserved ejection fraction
     Dosage: 1 G, 1X/DAY
  4. COLCHICINE [Interacting]
     Active Substance: COLCHICINE
     Indication: Atrial fibrillation
  5. ATORVASTATIN [Interacting]
     Active Substance: ATORVASTATIN
     Indication: Heart failure with preserved ejection fraction
     Dosage: 40 MG, 1X/DAY
  6. ATORVASTATIN [Interacting]
     Active Substance: ATORVASTATIN
     Indication: Atrial fibrillation
  7. WARFARIN [Concomitant]
     Active Substance: WARFARIN
     Indication: Atrial fibrillation
     Dosage: UNK, 1X/DAY
  8. WARFARIN [Concomitant]
     Active Substance: WARFARIN
     Indication: Heart failure with preserved ejection fraction
  9. ASPIRIN [Concomitant]
     Active Substance: ASPIRIN
     Indication: Atrial fibrillation
     Dosage: 100 MG, 1X/DAY
  10. ASPIRIN [Concomitant]
     Active Substance: ASPIRIN
     Indication: Heart failure with preserved ejection fraction
  11. FUROSEMIDE [Concomitant]
     Active Substance: FUROSEMIDE
     Indication: Atrial fibrillation
     Dosage: 40 MG, 1X/DAY
  12. FUROSEMIDE [Concomitant]
     Active Substance: FUROSEMIDE
     Indication: Heart failure with preserved ejection fraction
  13. PANTOPRAZOLE [Concomitant]
     Active Substance: PANTOPRAZOLE
     Dosage: 20 MG, 1X/DAY
  14. LOSARTAN [Concomitant]
     Active Substance: LOSARTAN
     Indication: Atrial fibrillation
     Dosage: 100 MG, 1X/DAY
  15. LOSARTAN [Concomitant]
     Active Substance: LOSARTAN
     Indication: Heart failure with preserved ejection fraction

REACTIONS (4)
  - Drug interaction [Unknown]
  - Pancytopenia [Recovering/Resolving]
  - Acute kidney injury [Recovering/Resolving]
  - Rhabdomyolysis [Recovering/Resolving]
